FAERS Safety Report 4668810-3 (Version None)
Quarter: 2005Q2

REPORT INFORMATION
  Report Type: 
  Country: None (occurrence: None)
  Receive Date: 20050523
  Receipt Date: 20050504
  Transmission Date: 20051028
  Serious: Yes (Hospitalization)
  Sender: FDA-Public Use
  Company Number: CH-JNJFOC-20050502688

PATIENT
  Age: 75 Year
  Sex: Female

DRUGS (10)
  1. HALDOL [Suspect]
     Indication: AGITATION
     Route: 030
     Dates: start: 20050418, end: 20050418
  2. HALDOL [Suspect]
     Indication: RESTLESSNESS
     Route: 030
     Dates: start: 20050418, end: 20050418
  3. TRAMADOL HCL [Suspect]
     Indication: PAIN
     Route: 049
     Dates: start: 20050415, end: 20050417
  4. DEROXAT [Suspect]
     Indication: DRUG USE FOR UNKNOWN INDICATION
     Route: 049
     Dates: start: 20050411, end: 20050417
  5. FRAXIPARINE [Concomitant]
     Route: 058
     Dates: start: 20050410, end: 20050416
  6. CLAMOXYL [Concomitant]
     Route: 049
     Dates: start: 20050413, end: 20050417
  7. ZESTRIL [Concomitant]
     Indication: ESSENTIAL HYPERTENSION
     Route: 049
     Dates: start: 20050413, end: 20050417
  8. TORSEMIDE [Concomitant]
     Route: 049
     Dates: start: 20050411, end: 20050417
  9. BELOC [Concomitant]
     Route: 049
     Dates: start: 20050413, end: 20050417
  10. ADALAT [Concomitant]
     Indication: ESSENTIAL HYPERTENSION
     Route: 049
     Dates: start: 20050413, end: 20050417

REACTIONS (2)
  - NEUROLEPTIC MALIGNANT SYNDROME [None]
  - SEROTONIN SYNDROME [None]
